FAERS Safety Report 8022135-7 (Version None)
Quarter: 2012Q1

REPORT INFORMATION
  Report Type: 
  Country: None (occurrence: None)
  Receive Date: 20120104
  Receipt Date: 20120103
  Transmission Date: 20120608
  Serious: No
  Sender: FDA-Public Use
  Company Number: US-PFIZER INC-2012001342

PATIENT
  Sex: Female
  Weight: 159 kg

DRUGS (5)
  1. TIKOSYN [Suspect]
     Indication: ATRIAL FIBRILLATION
     Dosage: 500 UG, 2X/DAY
     Dates: start: 20110912
  2. CARDIZEM [Concomitant]
     Indication: ATRIAL FIBRILLATION
     Dosage: 180 MG, DAILY
  3. POTASSIUM [Concomitant]
     Indication: BLOOD POTASSIUM DECREASED
     Dosage: 200 MEQ, DAILY
  4. PREDNISONE [Concomitant]
     Indication: DIARRHOEA
     Dosage: 10 MG, DAILY
  5. METOPROLOL [Concomitant]
     Indication: ATRIAL FIBRILLATION
     Dosage: 25 MG, DAILY

REACTIONS (3)
  - TACHYCARDIA [None]
  - EYE INFECTION [None]
  - SKIN INFECTION [None]
